FAERS Safety Report 23191748 (Version 6)
Quarter: 2025Q1

REPORT INFORMATION
  Report Type: Other
  Country: US (occurrence: US)
  Receive Date: 20231116
  Receipt Date: 20250119
  Transmission Date: 20250408
  Serious: Yes (Hospitalization)
  Sender: TRAVERE THERAPEUTICS
  Company Number: US-TRAVERE-2023TVT00626

PATIENT
  Sex: Male

DRUGS (5)
  1. FILSPARI [Suspect]
     Active Substance: SPARSENTAN
     Indication: IgA nephropathy
     Route: 048
     Dates: start: 20231014
  2. FILSPARI [Suspect]
     Active Substance: SPARSENTAN
     Indication: Type 2 diabetes mellitus
  3. FILSPARI [Suspect]
     Active Substance: SPARSENTAN
     Indication: Diabetic nephropathy
  4. Albumin IV [Concomitant]
  5. LASIX [Concomitant]
     Active Substance: FUROSEMIDE

REACTIONS (5)
  - Hospitalisation [Unknown]
  - Thirst [Unknown]
  - Oedema [None]
  - Gastrooesophageal reflux disease [Unknown]
  - Ulcer [Unknown]
